FAERS Safety Report 8187247-6 (Version None)
Quarter: 2012Q1

REPORT INFORMATION
  Report Type: 
  Country: None (occurrence: None)
  Receive Date: 20120306
  Receipt Date: 20120224
  Transmission Date: 20120608
  Serious: Yes (Other)
  Sender: FDA-Public Use
  Company Number: DK-JNJFOC-20120212985

PATIENT
  Sex: Male
  Weight: 90 kg

DRUGS (7)
  1. FUROSEMIDE [Interacting]
     Indication: DIURETIC THERAPY
     Route: 065
  2. METFORMIN HYDROCHLORIDE [Concomitant]
     Route: 065
  3. POTASSIUM CHLORIDE [Concomitant]
     Route: 065
  4. ASPIRIN [Concomitant]
     Indication: THROMBOSIS PROPHYLAXIS
     Route: 065
  5. ZYTIGA [Suspect]
     Indication: PROSTATE CANCER
     Route: 048
     Dates: start: 20111005
  6. CITALOPRAM HYDROBROMIDE [Concomitant]
     Route: 065
  7. PREDNISOLONE [Concomitant]
     Route: 065

REACTIONS (2)
  - DRUG INTERACTION [None]
  - MUSCLE SPASMS [None]
